FAERS Safety Report 7554997-1 (Version None)
Quarter: 2011Q2

REPORT INFORMATION
  Report Type: 
  Country: None (occurrence: None)
  Receive Date: 20110615
  Receipt Date: 20110615
  Transmission Date: 20111010
  Serious: No
  Sender: FDA-Public Use
  Company Number: None

PATIENT
  Age: 71 Year
  Sex: Female

DRUGS (2)
  1. CISPLATIN [Suspect]
  2. AVASTIN [Suspect]
     Indication: OVARIAN CANCER

REACTIONS (4)
  - FLUSHING [None]
  - BLOOD PRESSURE INCREASED [None]
  - PRURITUS [None]
  - ERYTHEMA [None]
